FAERS Safety Report 20973467 (Version 1)
Quarter: 2022Q2

REPORT INFORMATION
  Report Type: Spontaneous
  Country: CA (occurrence: CA)
  Receive Date: 20220617
  Receipt Date: 20220617
  Transmission Date: 20220721
  Serious: Yes (Other)
  Sender: FDA-Public Use
  Company Number: CA-TEVA-2022-CA-2045960

PATIENT
  Age: 23 Year
  Sex: Female

DRUGS (4)
  1. METHOTREXATE [Suspect]
     Active Substance: METHOTREXATE
     Indication: Product used for unknown indication
     Route: 065
  2. HYDROXYCHLOROQUINE SULFATE [Concomitant]
     Active Substance: HYDROXYCHLOROQUINE SULFATE
  3. ORENCIA [Concomitant]
     Active Substance: ABATACEPT
     Route: 042
  4. PREDNISONE [Concomitant]
     Active Substance: PREDNISONE

REACTIONS (5)
  - Condition aggravated [Unknown]
  - Dysgraphia [Unknown]
  - Joint swelling [Unknown]
  - Mixed connective tissue disease [Unknown]
  - Rheumatoid arthritis [Unknown]
